FAERS Safety Report 11522684 (Version 5)
Quarter: 2015Q4

REPORT INFORMATION
  Report Type: Spontaneous
  Country: HK (occurrence: HK)
  Receive Date: 20150918
  Receipt Date: 20151005
  Transmission Date: 20160304
  Serious: Yes (Hospitalization, Other)
  Sender: FDA-Public Use
  Company Number: HK-ABBVIE-15P-075-1465673-00

PATIENT
  Age: 52 Year
  Sex: Male
  Weight: 55 kg

DRUGS (1)
  1. VIEKIRA PAK [Suspect]
     Active Substance: DASABUVIR\OMBITASVIR\PARITAPREVIR\RITONAVIR
     Indication: CHRONIC HEPATITIS C
     Dosage: 2 OMBITASVIR/PARITAPREVIR/RITONAVIR TABLETS IN THE AM AND 1 DASABUVIR TABLET IN THE AM+PM
     Route: 048
     Dates: start: 20150801, end: 20150830

REACTIONS (1)
  - Malignant peritoneal neoplasm [Not Recovered/Not Resolved]

NARRATIVE: CASE EVENT DATE: 20150803
